FAERS Safety Report 13655905 (Version 1)
Quarter: 2017Q2

REPORT INFORMATION
  Report Type: Spontaneous
  Country: US (occurrence: US)
  Receive Date: 20170615
  Receipt Date: 20170615
  Transmission Date: 20170830
  Serious: No
  Sender: FDA-Public Use
  Company Number: US-BAYER-2017-108543

PATIENT
  Age: 72 Year
  Sex: Male
  Weight: 64 kg

DRUGS (1)
  1. MIRALAX [Suspect]
     Active Substance: POLYETHYLENE GLYCOL 3350
     Indication: GASTROINTESTINAL DISORDER
     Dosage: 6 DF, QD (6 CAPFULS - ONE ON THE FIRST NIGHT TWO ON THE SECOND NIGHT AND THREE ON THE THIRD NIGHT)
     Route: 048
     Dates: start: 201703

REACTIONS (3)
  - Drug ineffective [None]
  - Inappropriate prescribing [Unknown]
  - Inappropriate prescribing [Unknown]

NARRATIVE: CASE EVENT DATE: 201703
